FAERS Safety Report 7026659-0 (Version None)
Quarter: 2010Q4

REPORT INFORMATION
  Report Type: 
  Country: None (occurrence: None)
  Receive Date: 20101004
  Receipt Date: 20100921
  Transmission Date: 20110411
  Serious: Yes (Other)
  Sender: FDA-Public Use
  Company Number: US-SANOFI-AVENTIS-2010SA056886

PATIENT
  Age: 57 Year
  Sex: Female

DRUGS (14)
  1. MULTAQ [Suspect]
     Route: 048
     Dates: start: 20100625, end: 20100915
  2. MULTAQ [Suspect]
     Route: 048
     Dates: start: 20100916
  3. KAPIDEX [Concomitant]
  4. COREG [Concomitant]
  5. ENALAPRIL MALEATE [Concomitant]
  6. COUMADIN [Concomitant]
  7. DIGOXIN [Concomitant]
  8. PRAVASTATIN [Concomitant]
  9. COQ10 [Concomitant]
  10. MAGNESIUM [Concomitant]
  11. CALCIUM CITRATE [Concomitant]
  12. VITAMIN B [Concomitant]
  13. LASIX [Concomitant]
  14. K-DUR [Concomitant]

REACTIONS (4)
  - DIZZINESS [None]
  - HEPATOCELLULAR INJURY [None]
  - INCORRECT DOSE ADMINISTERED [None]
  - OFF LABEL USE [None]
